FAERS Safety Report 8010377-6 (Version None)
Quarter: 2011Q4

REPORT INFORMATION
  Report Type: 
  Country: None (occurrence: None)
  Receive Date: 20111222
  Receipt Date: 20111212
  Transmission Date: 20120403
  Serious: Yes (Hospitalization)
  Sender: FDA-Public Use
  Company Number: 2011HGS-002963

PATIENT
  Age: 45 Year
  Sex: Female
  Weight: 106.5953 kg

DRUGS (9)
  1. PLAQUENIL (HYDROXYCHLOROQUINE SULFATE) (HYDROXYCHLOROQUINE SULFATE) [Concomitant]
  2. ESTRADIOL [Concomitant]
  3. NEURONTIN [Concomitant]
  4. LORTAB (VICODIN) (PARACETAMOL, HYDROCODONE BITARTRATE) [Concomitant]
  5. VITAMIN C (ASCORBIC ACID) (ASCORBIC ACID) [Concomitant]
  6. BENLYSTA [Suspect]
     Indication: SYSTEMIC LUPUS ERYTHEMATOSUS
     Dosage: 1 IN 28 D, INTRAVENOUS DRIP
     Route: 041
     Dates: start: 20110822
  7. SINEMET (SINEMET) (LEVODOPA, CARBIDOPA) [Concomitant]
  8. MULTIVITAMIN (MULTIVITAMINS) (ERGOCALCIFEROL, ASCORBIC ACID, FOLIC ACI [Concomitant]
  9. LAMICTAL [Concomitant]

REACTIONS (3)
  - VAGINAL HAEMORRHAGE [None]
  - ENDOMETRIAL DYSPLASIA [None]
  - BACTERIAL INFECTION [None]
